FAERS Safety Report 25571201 (Version 2)
Quarter: 2025Q3

REPORT INFORMATION
  Report Type: Spontaneous
  Country: GB (occurrence: GB)
  Receive Date: 20250717
  Receipt Date: 20250725
  Transmission Date: 20251020
  Serious: Yes (Life-Threatening, Hospitalization, Other)
  Sender: Kenvue
  Company Number: GB-KENVUE-20250704551

PATIENT

DRUGS (3)
  1. ACETAMINOPHEN [Suspect]
     Active Substance: ACETAMINOPHEN
     Indication: Product used for unknown indication
     Route: 048
  2. CODEINE [Suspect]
     Active Substance: CODEINE
     Indication: Product used for unknown indication
     Route: 048
  3. MIRTAZAPINE [Suspect]
     Active Substance: MIRTAZAPINE
     Indication: Product used for unknown indication
     Route: 048

REACTIONS (6)
  - IIIrd nerve paralysis [Recovering/Resolving]
  - Brain oedema [Recovering/Resolving]
  - Acute hepatic failure [Recovering/Resolving]
  - Intentional overdose [Unknown]
  - Metabolic acidosis [Recovering/Resolving]
  - Coagulopathy [Recovering/Resolving]
